FAERS Safety Report 8969332 (Version 1)
Quarter: 2012Q4

REPORT INFORMATION
  Report Type: 
  Country: US (occurrence: US)
  Receive Date: 20121218
  Receipt Date: 20121218
  Transmission Date: 20130627
  Serious: No
  Sender: FDA-Public Use
  Company Number: US-BRISTOL-MYERS SQUIBB COMPANY-16280497

PATIENT
  Age: 48 Year
  Sex: Female
  Weight: 90.7 kg

DRUGS (6)
  1. ABILIFY [Suspect]
     Indication: DEPRESSION
     Dates: end: 20111207
  2. CYMBALTA [Concomitant]
     Indication: DEPRESSION
  3. CYMBALTA [Concomitant]
     Indication: MYALGIA
  4. FLUOXETINE [Concomitant]
     Indication: DEPRESSION
  5. ATIVAN [Concomitant]
     Indication: ANXIETY
  6. SOMA [Concomitant]
     Indication: ARTHRALGIA
     Dosage: at nyt

REACTIONS (5)
  - Memory impairment [Recovering/Resolving]
  - Asthenia [Recovering/Resolving]
  - Feeling abnormal [Recovering/Resolving]
  - Anxiety [Unknown]
  - Insomnia [Unknown]
